FAERS Safety Report 17772984 (Version 1)
Quarter: 2020Q2

REPORT INFORMATION
  Report Type: Spontaneous
  Country: US (occurrence: US)
  Receive Date: 20200512
  Receipt Date: 20200512
  Transmission Date: 20200714
  Serious: No
  Sender: FDA-Public Use
  Company Number: US-TOLMAR, INC.-20US020118

PATIENT
  Sex: Male

DRUGS (2)
  1. ATRIDOX [Suspect]
     Active Substance: DOXYCYCLINE HYCLATE
     Indication: ANTIBIOTIC THERAPY
     Dosage: 50 MG
     Route: 065
     Dates: start: 20200203
  2. ATRIDOX [Suspect]
     Active Substance: DOXYCYCLINE HYCLATE
     Indication: DENTAL CARE

REACTIONS (2)
  - Product physical consistency issue [Unknown]
  - Gingival discomfort [Recovered/Resolved]

NARRATIVE: CASE EVENT DATE: 2020
